FAERS Safety Report 8271994-1 (Version None)
Quarter: 2012Q2

REPORT INFORMATION
  Report Type: 
  Country: None (occurrence: None)
  Receive Date: 20120410
  Receipt Date: 20120402
  Transmission Date: 20120825
  Serious: Yes (Hospitalization)
  Sender: FDA-Public Use
  Company Number: US-BAYER-2012-006018

PATIENT
  Age: 38 Year
  Sex: Female
  Weight: 58.05 kg

DRUGS (4)
  1. YAZ [Suspect]
     Indication: ACNE
  2. MINOCYCLINE HCL [Concomitant]
     Indication: ACNE
     Dosage: UNK
     Dates: start: 20090701
  3. PARAGARD T 380A [Concomitant]
     Dosage: UNK
     Dates: start: 20091022, end: 20100101
  4. YAZ [Suspect]
     Indication: CONTRACEPTION
     Dosage: UNK
     Dates: start: 20091022, end: 20100120

REACTIONS (2)
  - INJURY [None]
  - PULMONARY EMBOLISM [None]
